FAERS Safety Report 8304310-7 (Version None)
Quarter: 2012Q2

REPORT INFORMATION
  Report Type: 
  Country: None (occurrence: None)
  Receive Date: 20120423
  Receipt Date: 20120423
  Transmission Date: 20120825
  Serious: Yes (Other)
  Sender: FDA-Public Use
  Company Number: None

PATIENT
  Age: 52 Year
  Sex: Male
  Weight: 87.089 kg

DRUGS (2)
  1. ANDROGEL [Suspect]
     Indication: PRIMARY HYPOGONADISM
     Dosage: 2 PUMPS
     Route: 061
     Dates: start: 20111001, end: 20120311
  2. ANDROGEL [Concomitant]

REACTIONS (6)
  - AFFECTIVE DISORDER [None]
  - DEPRESSION [None]
  - SUICIDAL IDEATION [None]
  - VISUAL IMPAIRMENT [None]
  - HYPERTENSION [None]
  - DIZZINESS [None]
